FAERS Safety Report 8082687-8 (Version None)
Quarter: 2012Q1

REPORT INFORMATION
  Report Type: 
  Country: None (occurrence: None)
  Receive Date: 20120127
  Receipt Date: 20110301
  Transmission Date: 20120608
  Serious: No
  Sender: FDA-Public Use
  Company Number: US-ABBOTT-11P-163-0708342-00

PATIENT
  Age: 58 Year
  Sex: Female

DRUGS (10)
  1. DICLOFENAC [Concomitant]
     Indication: RHEUMATOID ARTHRITIS
     Dosage: AS NEEDED
  2. LESLUMIDE [Concomitant]
     Indication: RHEUMATOID ARTHRITIS
  3. HYDROCHLOROTHIAZIDE [Concomitant]
     Indication: BLOOD PRESSURE
  4. FOSAMAX [Concomitant]
     Indication: OSTEOPENIA
  5. PLAQUENIL [Concomitant]
     Indication: RHEUMATOID ARTHRITIS
  6. MIRAPEX [Concomitant]
     Indication: RESTLESS LEGS SYNDROME
  7. CELEXA [Concomitant]
     Indication: ANXIETY
  8. HUMIRA [Suspect]
     Indication: RHEUMATOID ARTHRITIS
     Dates: start: 20110207
  9. DITROPAN XL [Concomitant]
     Indication: PRODUCT USED FOR UNKNOWN INDICATION
  10. CELEXA [Concomitant]
     Indication: DEPRESSION

REACTIONS (1)
  - FATIGUE [None]
